FAERS Safety Report 16623712 (Version 7)
Quarter: 2020Q1

REPORT INFORMATION
  Report Type: Report from Study
  Country: US (occurrence: US)
  Receive Date: 20190724
  Receipt Date: 20200331
  Transmission Date: 20200409
  Serious: Yes (Hospitalization, Other)
  Sender: FDA-Public Use
  Company Number: US-SA-2019SA197750

PATIENT
  Age: 41 Year
  Sex: Female

DRUGS (2)
  1. ALEMTUZUMAB [Suspect]
     Active Substance: ALEMTUZUMAB
     Dosage: 12 MG, QD
     Route: 041
     Dates: start: 20190715, end: 20190717
  2. ALEMTUZUMAB [Suspect]
     Active Substance: ALEMTUZUMAB
     Dosage: UNK UNK, QD
     Route: 041
     Dates: start: 20190723, end: 20190724

REACTIONS (6)
  - Bradycardia [Recovered/Resolved]
  - Dizziness [Recovered/Resolved]
  - Platelet count decreased [Recovering/Resolving]
  - Palpitations [Recovered/Resolved]
  - Liver function test abnormal [Unknown]
  - Thrombocytopenia [Unknown]

NARRATIVE: CASE EVENT DATE: 20190716
